FAERS Safety Report 5040536-6 (Version None)
Quarter: 2006Q2

REPORT INFORMATION
  Report Type: 
  Country: None (occurrence: None)
  Receive Date: 20060630
  Receipt Date: 20060410
  Transmission Date: 20061013
  Serious: Yes (Other)
  Sender: FDA-Public Use
  Company Number: CA-ROCHE-444187

PATIENT
  Age: 37 Year
  Sex: Female

DRUGS (1)
  1. ACCUTANE [Suspect]
     Route: 048
     Dates: start: 19841115, end: 19850115

REACTIONS (1)
  - THROMBOPHLEBITIS [None]
